FAERS Safety Report 26035525 (Version 1)
Quarter: 2025Q4

REPORT INFORMATION
  Report Type: Spontaneous
  Country: US (occurrence: US)
  Receive Date: 20251112
  Receipt Date: 20251112
  Transmission Date: 20260118
  Serious: Yes (Hospitalization, Other)
  Sender: HIKMA
  Company Number: US-HIKMA PHARMACEUTICALS USA INC.-US-H14001-24-07797

PATIENT
  Sex: Male
  Weight: 97.5 kg

DRUGS (4)
  1. CAPLYTA [Suspect]
     Active Substance: LUMATEPERONE
     Indication: Bipolar disorder
     Dosage: 42 MILLIGRAM, QD
     Route: 065
     Dates: start: 202306
  2. LITHIUM [Suspect]
     Active Substance: LITHIUM
     Indication: Product used for unknown indication
     Dosage: UNK
     Route: 065
  3. OLANZAPINE [Suspect]
     Active Substance: OLANZAPINE
     Indication: Product used for unknown indication
     Dosage: UNK
     Route: 065
  4. SEROQUEL [Suspect]
     Active Substance: QUETIAPINE FUMARATE
     Indication: Product used for unknown indication
     Dosage: 200
     Route: 065

REACTIONS (9)
  - Hypophagia [Unknown]
  - Dissociation [Unknown]
  - Hypersomnia [Unknown]
  - Toxicity to various agents [Unknown]
  - Feeling abnormal [Unknown]
  - Mania [Unknown]
  - Sexual dysfunction [Unknown]
  - Memory impairment [Not Recovered/Not Resolved]
  - Weight increased [Unknown]
